FAERS Safety Report 14683397 (Version 1)
Quarter: 2018Q1

REPORT INFORMATION
  Report Type: Spontaneous
  Country: US (occurrence: US)
  Receive Date: 20180327
  Receipt Date: 20180327
  Transmission Date: 20180509
  Serious: No
  Sender: FDA-Public Use
  Company Number: US-PFIZER INC-2018124261

PATIENT
  Age: 59 Year
  Sex: Female
  Weight: 116.12 kg

DRUGS (2)
  1. LYRICA [Suspect]
     Active Substance: PREGABALIN
     Dosage: 75 MG, 3X/DAY (75 MG THREE TIMES A DAY)
  2. LYRICA [Suspect]
     Active Substance: PREGABALIN
     Indication: POST HERPETIC NEURALGIA
     Dosage: 50 MG, UNK
     Route: 048
     Dates: start: 201706

REACTIONS (2)
  - Vomiting [Recovered/Resolved]
  - Drug effect incomplete [Unknown]
